FAERS Safety Report 6095700-4 (Version None)
Quarter: 2009Q1

REPORT INFORMATION
  Report Type: 
  Country: None (occurrence: None)
  Receive Date: 20090227
  Receipt Date: 20080721
  Transmission Date: 20090719
  Serious: No
  Sender: FDA-Public Use
  Company Number: A0729648A

PATIENT
  Age: 42 Year
  Sex: Female

DRUGS (4)
  1. LAMICTAL [Suspect]
     Indication: MIGRAINE PROPHYLAXIS
     Dosage: 25MG PER DAY
     Route: 048
     Dates: start: 20080508, end: 20080521
  2. INDOCIN [Concomitant]
  3. SEROQUEL [Concomitant]
  4. ZOMIG [Concomitant]

REACTIONS (3)
  - PRURITUS [None]
  - RASH MACULAR [None]
  - SKIN REACTION [None]
